FAERS Safety Report 9175723 (Version 2)
Quarter: 2013Q2

REPORT INFORMATION
  Report Type: Spontaneous
  Country: US (occurrence: US)
  Receive Date: 20130320
  Receipt Date: 20130513
  Transmission Date: 20140414
  Serious: Yes (Death, Other)
  Sender: FDA-Public Use
  Company Number: US-PFIZER INC-2013089623

PATIENT
  Age: 80 Year
  Sex: Male

DRUGS (2)
  1. LIPITOR [Suspect]
     Dosage: 20 MG, 1X/DAY
  2. PROCARDIA XL [Suspect]
     Dosage: 90 MG, 1X/DAY

REACTIONS (2)
  - Death [Fatal]
  - Lung neoplasm malignant [Unknown]
